FAERS Safety Report 13378215 (Version 1)
Quarter: 2017Q1

REPORT INFORMATION
  Report Type: Report from Study
  Country: US (occurrence: US)
  Receive Date: 20170328
  Receipt Date: 20170328
  Transmission Date: 20170429
  Serious: Yes (Life-Threatening, Hospitalization, Other)
  Sender: FDA-Public Use
  Company Number: US-BRISTOL-MYERS SQUIBB COMPANY-BMS-2017-024260

PATIENT
  Age: 70 Year
  Sex: Male
  Weight: 83.9 kg

DRUGS (1)
  1. APIXABAN [Suspect]
     Active Substance: APIXABAN
     Indication: THROMBOSIS PROPHYLAXIS
     Dosage: 5 MG, BID
     Route: 048
     Dates: start: 20161202, end: 20161211

REACTIONS (10)
  - Urinary incontinence [Unknown]
  - Gastrointestinal disorder [Unknown]
  - Adrenal haemorrhage [Unknown]
  - Pulmonary embolism [Unknown]
  - Renal failure [Unknown]
  - Vena cava filter insertion [Unknown]
  - Hepatic failure [Unknown]
  - Incoherent [Unknown]
  - Thrombosis [Unknown]
  - Back pain [Unknown]

NARRATIVE: CASE EVENT DATE: 20161204
